FAERS Safety Report 25554997 (Version 3)
Quarter: 2025Q3

REPORT INFORMATION
  Report Type: Spontaneous
  Country: US (occurrence: US)
  Receive Date: 20250715
  Receipt Date: 20250827
  Transmission Date: 20251020
  Serious: No
  Sender: PFIZER
  Company Number: US-PFIZER INC-202500139696

PATIENT
  Age: 66 Year
  Sex: Male
  Weight: 74.84 kg

DRUGS (1)
  1. GENOTROPIN [Suspect]
     Active Substance: SOMATROPIN
     Indication: Pituitary tumour benign
     Dosage: 0.2 MG, 1X/DAY

REACTIONS (3)
  - Device delivery system issue [Unknown]
  - Device leakage [Unknown]
  - Suspected product quality issue [Unknown]
